FAERS Safety Report 9672203 (Version 1)
Quarter: 2013Q4

REPORT INFORMATION
  Report Type: Spontaneous
  Country: GB (occurrence: GB)
  Receive Date: 20131106
  Receipt Date: 20131106
  Transmission Date: 20140711
  Serious: Yes (Other)
  Sender: FDA-Public Use
  Company Number: GB-ACTAVIS-2013-20200

PATIENT
  Sex: Male
  Weight: 90 kg

DRUGS (1)
  1. DOXYCYCLINE HYCLATE (UNKNOWN) [Suspect]
     Indication: EPIDIDYMITIS
     Dosage: 100 MG; TWO STAT THEN ONE DAILY
     Route: 048
     Dates: start: 20131002, end: 20131003

REACTIONS (1)
  - Vomiting projectile [Not Recovered/Not Resolved]
